FAERS Safety Report 5676004-8 (Version None)
Quarter: 2008Q1

REPORT INFORMATION
  Report Type: 
  Country: None (occurrence: None)
  Receive Date: 20080318
  Receipt Date: 20080305
  Transmission Date: 20080703
  Serious: Yes (Other)
  Sender: FDA-Public Use
  Company Number: 2008-01685

PATIENT
  Age: 31 Year
  Sex: Female

DRUGS (1)
  1. LUTERA 0.02/0.1-28 (WATSON LABORATORIES)(LEVONORGESTREL 0.1 MG, ETHINY [Suspect]
     Indication: CONTRACEPTION
     Dosage: 1 TABLET, DAILY, ORAL
     Route: 048
     Dates: start: 20080225, end: 20080227

REACTIONS (4)
  - ANGIOEDEMA [None]
  - HYPERSENSITIVITY [None]
  - PHARMACEUTICAL PRODUCT COMPLAINT [None]
  - REACTION TO DRUG EXCIPIENTS [None]
